FAERS Safety Report 5430929-7 (Version None)
Quarter: 2007Q3

REPORT INFORMATION
  Report Type: 
  Country: None (occurrence: None)
  Receive Date: 20070830
  Receipt Date: 20070823
  Transmission Date: 20080115
  Serious: Yes (Hospitalization)
  Sender: FDA-Public Use
  Company Number: GB-AVENTIS-200717235GDDC

PATIENT
  Age: 76 Year
  Sex: Male

DRUGS (2)
  1. LANTUS [Suspect]
     Route: 058
  2. LANTUS [Suspect]
     Route: 058

REACTIONS (4)
  - DIABETIC KETOACIDOSIS [None]
  - DRUG ADMINISTRATION ERROR [None]
  - HYPERGLYCAEMIA [None]
  - MYOCARDIAL INFARCTION [None]
